FAERS Safety Report 19922384 (Version 1)
Quarter: 2021Q4

REPORT INFORMATION
  Report Type: Spontaneous
  Country: US (occurrence: US)
  Receive Date: 20211005
  Receipt Date: 20211005
  Transmission Date: 20220304
  Serious: Yes (Hospitalization)
  Sender: FDA-Public Use
  Company Number: None

PATIENT
  Age: 71 Year
  Sex: Female

DRUGS (1)
  1. ENBREL [Suspect]
     Active Substance: ETANERCEPT
     Indication: Rheumatoid arthritis
     Dosage: ?          OTHER FREQUENCY:WEEKLY;
     Route: 030

REACTIONS (2)
  - SARS-CoV-2 test positive [None]
  - Intentional dose omission [None]

NARRATIVE: CASE EVENT DATE: 20210930
